FAERS Safety Report 6784837-X (Version None)
Quarter: 2010Q2

REPORT INFORMATION
  Report Type: 
  Country: None (occurrence: None)
  Receive Date: 20100622
  Receipt Date: 20100610
  Transmission Date: 20101027
  Serious: Yes (Life-Threatening, Hospitalization, Other)
  Sender: FDA-Public Use
  Company Number: US-WYE-H15649410

PATIENT
  Sex: Female
  Weight: 74.91 kg

DRUGS (7)
  1. EFFEXOR XR [Suspect]
     Indication: DEPRESSION
     Dates: start: 20040101
  2. EFFEXOR XR [Suspect]
     Dosage: RESTARTED AT AN UNKNOWN DOSE
     Dates: start: 20070101, end: 20090601
  3. ATIVAN [Concomitant]
     Dosage: ^20 MG^
  4. PROPRANOLOL [Concomitant]
     Indication: ANXIETY
  5. LITHIUM [Concomitant]
  6. SEROQUEL [Concomitant]
     Dosage: ^ABOUT 200^
  7. LAMICTAL [Concomitant]

REACTIONS (8)
  - BACK PAIN [None]
  - DEPRESSION [None]
  - DRUG WITHDRAWAL SYNDROME [None]
  - INSOMNIA [None]
  - MANIA [None]
  - NONSPECIFIC REACTION [None]
  - PANIC REACTION [None]
  - STRESS [None]
